FAERS Safety Report 5686085-3 (Version None)
Quarter: 2008Q1

REPORT INFORMATION
  Report Type: 
  Country: None (occurrence: None)
  Receive Date: 20080328
  Receipt Date: 20070712
  Transmission Date: 20080703
  Serious: No
  Sender: FDA-Public Use
  Company Number: US-BAYER-US-2007-025886

PATIENT
  Age: 40 Year
  Sex: Female
  Weight: 64 kg

DRUGS (4)
  1. MIRENA [Suspect]
     Indication: CONTRACEPTION
     Route: 015
     Dates: start: 20070514, end: 20070701
  2. LEXAPRO [Concomitant]
  3. TRAMADOL HCL [Concomitant]
  4. ADCO-METRONIDAZOLE [Concomitant]

REACTIONS (1)
  - INTRA-UTERINE CONTRACEPTIVE DEVICE EXPELLED [None]
